FAERS Safety Report 6211152-5 (Version None)
Quarter: 2009Q2

REPORT INFORMATION
  Report Type: 
  Country: None (occurrence: None)
  Receive Date: 20090602
  Receipt Date: 20090527
  Transmission Date: 20091009
  Serious: Yes (Other)
  Sender: FDA-Public Use
  Company Number: US-ROCHE-623903

PATIENT
  Sex: Female

DRUGS (2)
  1. PEG-INTERFERON A-2A (RO 25-8310) [Suspect]
     Indication: HEPATITIS C
     Dosage: FORM: PFS, PATIENT IN WEEK 29 OF TREATMENT
     Route: 065
     Dates: start: 20081111
  2. RIBAVIRIN [Suspect]
     Indication: HEPATITIS C
     Dosage: PATIENT IN WEEK 29 OF TREATMENT; ONE DOSE MISSED
     Route: 065
     Dates: start: 20081111

REACTIONS (8)
  - ANAEMIA [None]
  - ASTHENIA [None]
  - DIZZINESS [None]
  - FATIGUE [None]
  - INSOMNIA [None]
  - OVARIAN CYST [None]
  - RASH [None]
  - WHITE BLOOD CELL COUNT DECREASED [None]
